FAERS Safety Report 6554528-9 (Version None)
Quarter: 2010Q1

REPORT INFORMATION
  Report Type: 
  Country: None (occurrence: None)
  Receive Date: 20100127
  Receipt Date: 20100115
  Transmission Date: 20100710
  Serious: Yes (Other)
  Sender: FDA-Public Use
  Company Number: PHHY2009KR54743

PATIENT
  Sex: Female
  Weight: 46.3 kg

DRUGS (6)
  1. CGP 57148B T35717+ [Suspect]
     Indication: CHRONIC MYELOID LEUKAEMIA
     Dosage: 400 MG DAILY
     Route: 048
     Dates: start: 20081231, end: 20090128
  2. CGP 57148B T35717+ [Suspect]
     Dosage: 400 MG DAILY
     Route: 048
     Dates: start: 20090206
  3. HYDROXYUREA [Concomitant]
     Indication: NEOPLASM MALIGNANT
     Dosage: UNK
     Route: 048
     Dates: start: 20081231, end: 20090114
  4. ALLOPURINOL [Concomitant]
     Indication: BLOOD LACTIC ACID INCREASED
     Dosage: UNK
     Route: 048
     Dates: start: 20081231, end: 20090114
  5. FOLIC ACID [Concomitant]
     Indication: ANAEMIA
     Dosage: UNK
     Route: 048
     Dates: start: 20090206
  6. PYRIDOXINE [Concomitant]
     Indication: ANAEMIA
     Dosage: UNK
     Route: 048
     Dates: start: 20090206, end: 20090311

REACTIONS (6)
  - DACRYOSTENOSIS ACQUIRED [None]
  - FACE OEDEMA [None]
  - FATIGUE [None]
  - MYALGIA [None]
  - NEUTROPENIA [None]
  - THROMBOCYTOPENIA [None]
